FAERS Safety Report 22170923 (Version 1)
Quarter: 2023Q2

REPORT INFORMATION
  Report Type: Spontaneous
  Country: US (occurrence: None)
  Receive Date: 20230403
  Receipt Date: 20230403
  Transmission Date: 20230722
  Serious: Yes (Hospitalization)
  Sender: FDA-Public Use
  Company Number: None

PATIENT
  Age: 76 Year
  Sex: Female
  Weight: 72 kg

DRUGS (5)
  1. DULCOLAX (BISACODYL) [Suspect]
     Active Substance: BISACODYL
     Indication: Constipation
     Dosage: OTHER QUANTITY : 20 TABLET(S);?FREQUENCY : DAILY;?
     Route: 048
     Dates: start: 20230315
  2. LISINOPRIL [Concomitant]
     Active Substance: LISINOPRIL
  3. synthroid .112 mcg [Concomitant]
  4. LIPITOR [Concomitant]
     Active Substance: ATORVASTATIN CALCIUM
  5. One-a-Day Vitamins [Concomitant]

REACTIONS (12)
  - Vomiting [None]
  - Abdominal pain upper [None]
  - Tremor [None]
  - Burning sensation [None]
  - Renal disorder [None]
  - Pyrexia [None]
  - Lip swelling [None]
  - Rectal haemorrhage [None]
  - Renal impairment [None]
  - Dehydration [None]
  - Infection [None]
  - Gastrointestinal inflammation [None]

NARRATIVE: CASE EVENT DATE: 20230315
